FAERS Safety Report 21819396 (Version 5)
Quarter: 2023Q2

REPORT INFORMATION
  Report Type: Spontaneous
  Country: US (occurrence: US)
  Receive Date: 20230104
  Receipt Date: 20230504
  Transmission Date: 20230721
  Serious: No
  Sender: FDA-Public Use
  Company Number: US-KARYOPHARM-2022KPT001389

PATIENT

DRUGS (11)
  1. XPOVIO [Suspect]
     Active Substance: SELINEXOR
     Indication: Plasma cell myeloma
     Dosage: 40 MG, WEEKLY
     Route: 048
     Dates: start: 20221110
  2. XPOVIO [Suspect]
     Active Substance: SELINEXOR
     Dosage: 40 MG, D1 + 14 Q28D
     Route: 048
     Dates: start: 2023
  3. GEMFIBROZIL [Concomitant]
     Active Substance: GEMFIBROZIL
  4. LEVOTHYROXINE [Concomitant]
     Active Substance: LEVOTHYROXINE
  5. LOSARTAN [Concomitant]
     Active Substance: LOSARTAN
  6. NITROSTAT [Concomitant]
     Active Substance: NITROGLYCERIN
  7. PROCHLORPERAZINE [Concomitant]
     Active Substance: PROCHLORPERAZINE
  8. ZYPREXA [Concomitant]
     Active Substance: OLANZAPINE
  9. ZOFRAN [Concomitant]
     Active Substance: ONDANSETRON HYDROCHLORIDE
  10. DEXAMETHASONE [Concomitant]
     Active Substance: DEXAMETHASONE
  11. KYPROLIS [Concomitant]
     Active Substance: CARFILZOMIB

REACTIONS (5)
  - Somnolence [Unknown]
  - Fatigue [Unknown]
  - Dizziness [Unknown]
  - Nausea [Not Recovered/Not Resolved]
  - Product dose omission in error [Unknown]

NARRATIVE: CASE EVENT DATE: 20221101
